FAERS Safety Report 18661545 (Version 1)
Quarter: 2020Q4

REPORT INFORMATION
  Report Type: Spontaneous
  Country: CN (occurrence: CN)
  Receive Date: 20201224
  Receipt Date: 20201224
  Transmission Date: 20210114
  Serious: Yes (Other)
  Sender: FDA-Public Use
  Company Number: CN-BAXTER-2020BAX026111

PATIENT
  Age: 4 Year
  Sex: Male
  Weight: 15.5 kg

DRUGS (10)
  1. 0.9% SODIUM CHLORIDE INJECTION [Suspect]
     Active Substance: SODIUM CHLORIDE
     Dosage: DOSE RE-INTRODUCTION, CYCLOPHOSPHAMIDE + NS
     Route: 041
     Dates: start: 202012
  2. 0.9% SODIUM CHLORIDE INJECTION [Suspect]
     Active Substance: SODIUM CHLORIDE
     Dosage: AOLUONA 0.48 MG + 100ML NS
     Route: 041
     Dates: start: 20201129, end: 20201203
  3. ENDOXAN [Suspect]
     Active Substance: CYCLOPHOSPHAMIDE
     Indication: NEOPLASM MALIGNANT
     Dosage: CYCLOPHOSPHAMIDE 0.16G + NS 20ML
     Route: 041
     Dates: start: 20201129, end: 20201203
  4. ENDOXAN [Suspect]
     Active Substance: CYCLOPHOSPHAMIDE
     Dosage: (DOSE RE-INTRODUCED)
     Route: 041
     Dates: start: 202012
  5. 0.9% SODIUM CHLORIDE INJECTION [Suspect]
     Active Substance: SODIUM CHLORIDE
     Dosage: DOSE RE-INTRODUCTION, AOLUONA + 100 ML
     Route: 041
     Dates: start: 202012
  6. AOLUONA (TOPOTECAN HYDROCHLORIDE) [Suspect]
     Active Substance: TOPOTECAN HYDROCHLORIDE
     Dosage: (DOSE RE-INTRODUCED)
     Route: 041
     Dates: start: 202012
  7. UROMITEXAN [Suspect]
     Active Substance: MESNA
     Indication: MEDICATION DILUTION
     Route: 041
     Dates: start: 20201129, end: 20201203
  8. UROMITEXAN [Suspect]
     Active Substance: MESNA
     Dosage: DOSE RE-INTRODUCTION
     Route: 041
     Dates: start: 202012
  9. 0.9% SODIUM CHLORIDE INJECTION [Suspect]
     Active Substance: SODIUM CHLORIDE
     Indication: MEDICATION DILUTION
     Dosage: CYCLOPHOSPHAMIDE 0.16G + 20ML NS
     Route: 041
     Dates: start: 20201129, end: 20201203
  10. AOLUONA (TOPOTECAN HYDROCHLORIDE) [Suspect]
     Active Substance: TOPOTECAN HYDROCHLORIDE
     Indication: NEOPLASM MALIGNANT
     Dosage: TOPOTECAN 0.48MG + 100ML NS
     Route: 041
     Dates: start: 20201129, end: 20201203

REACTIONS (1)
  - Myelosuppression [Unknown]

NARRATIVE: CASE EVENT DATE: 20201203
